FAERS Safety Report 13909714 (Version 1)
Quarter: 2017Q3

REPORT INFORMATION
  Report Type: Spontaneous
  Country: US (occurrence: US)
  Receive Date: 20170828
  Receipt Date: 20170828
  Transmission Date: 20171127
  Serious: Yes (Hospitalization, Other)
  Sender: FDA-Public Use
  Company Number: US-TORRENT-00003301

PATIENT
  Age: 55 Year
  Sex: Female

DRUGS (9)
  1. METRONIDAZOLE. [Suspect]
     Active Substance: METRONIDAZOLE
  2. ACETYLSALICYLIC ACID [Concomitant]
     Active Substance: ASPIRIN
  3. PANTOPRAZOLE/PANTOPRAZOLE SODIUM SESQUIHYDRATE [Suspect]
     Active Substance: PANTOPRAZOLE SODIUM
  4. VANCOMYCIN/VANCOMYCIN HYDROCHLORIDE [Concomitant]
  5. LISINOPRIL. [Concomitant]
     Active Substance: LISINOPRIL
  6. ATORVASTATIN/ATORVASTATIN CALCIUM [Concomitant]
  7. HEPARIN [Concomitant]
     Active Substance: HEPARIN SODIUM
  8. METOPROLOL/METOPROLOL TARTRATE [Concomitant]
  9. CEFEPIME/CEFEPIME HYDROCHLORIDE [Concomitant]

REACTIONS (1)
  - Stress cardiomyopathy [Recovering/Resolving]
